FAERS Safety Report 5379341-X (Version None)
Quarter: 2007Q3

REPORT INFORMATION
  Report Type: 
  Country: None (occurrence: None)
  Receive Date: 20070705
  Receipt Date: 20070627
  Transmission Date: 20080115
  Serious: Yes (Hospitalization)
  Sender: FDA-Public Use
  Company Number: ES-PFIZER INC-2007052483

PATIENT
  Age: 80 Year
  Sex: Male

DRUGS (6)
  1. ALDACTONE [Suspect]
     Indication: CARDIAC FAILURE CONGESTIVE
     Route: 048
  2. RENITEC [Interacting]
     Indication: CARDIAC FAILURE CONGESTIVE
     Route: 048
  3. SEGURIL [Interacting]
     Indication: CARDIAC FAILURE CONGESTIVE
     Route: 048
  4. TARDYFERON [Concomitant]
     Indication: POLYCYTHAEMIA
     Route: 048
  5. FRAXIPARINA [Concomitant]
     Dosage: FREQ:557 KU/DAY
     Route: 058
  6. NIMUSTINE [Concomitant]
     Dosage: DAILY DOSE:20MG-FREQ:DAILY
     Route: 048

REACTIONS (3)
  - DRUG INTERACTION [None]
  - HYPERKALAEMIA [None]
  - RENAL FAILURE ACUTE [None]
